FAERS Safety Report 21127226 (Version 1)
Quarter: 2022Q3

REPORT INFORMATION
  Report Type: Spontaneous
  Country: US (occurrence: US)
  Receive Date: 20220725
  Receipt Date: 20220725
  Transmission Date: 20221027
  Serious: No
  Sender: FDA-Public Use
  Company Number: US-ABBVIE-21K-163-4069175-00

PATIENT
  Age: 85 Year
  Sex: Female

DRUGS (2)
  1. SYNTHROID [Suspect]
     Active Substance: LEVOTHYROXINE SODIUM
     Indication: Thyroidectomy
     Dosage: 1970S OR 1980S
     Route: 048
  2. SYNTHROID [Suspect]
     Active Substance: LEVOTHYROXINE SODIUM
     Route: 048
     Dates: start: 2021

REACTIONS (8)
  - Illness [Recovered/Resolved]
  - Sleep apnoea syndrome [Unknown]
  - Dyspnoea [Unknown]
  - Vitamin B12 decreased [Unknown]
  - Complication associated with device [Unknown]
  - Alopecia [Unknown]
  - Fatigue [Unknown]
  - Insomnia [Recovered/Resolved]
